FAERS Safety Report 8524554-9 (Version None)
Quarter: 2012Q3

REPORT INFORMATION
  Report Type: 
  Country: None (occurrence: None)
  Receive Date: 20120716
  Receipt Date: 20120716
  Transmission Date: 20120928
  Serious: Yes (Life-Threatening, Other)
  Sender: FDA-Public Use
  Company Number: None

PATIENT
  Age: 82 Year
  Sex: Female
  Weight: 76.6579 kg

DRUGS (2)
  1. CLOPIDOGREL BISULFATE [Suspect]
     Indication: ISCHAEMIC CARDIOMYOPATHY
     Dosage: 1 TAB DAILY PO
     Route: 048
     Dates: start: 20120613, end: 20120714
  2. CLOPIDOGREL BISULFATE [Suspect]
     Indication: CARDIAC FAILURE CONGESTIVE
     Dosage: 1 TAB DAILY PO
     Route: 048
     Dates: start: 20120613, end: 20120714

REACTIONS (8)
  - SKIN DISCOLOURATION [None]
  - FATIGUE [None]
  - EPISTAXIS [None]
  - DYSPNOEA EXERTIONAL [None]
  - CONTUSION [None]
  - INSOMNIA [None]
  - OEDEMA PERIPHERAL [None]
  - PRODUCT SUBSTITUTION ISSUE [None]
